FAERS Safety Report 17534380 (Version 1)
Quarter: 2020Q1

REPORT INFORMATION
  Report Type: Spontaneous
  Country: US (occurrence: US)
  Receive Date: 20200312
  Receipt Date: 20200312
  Transmission Date: 20200409
  Serious: No
  Sender: FDA-Public Use
  Company Number: US-NEUROCRINE BIOSCIENCES INC.-2020NBI00721

PATIENT
  Sex: Male

DRUGS (5)
  1. INGREZZA [Suspect]
     Active Substance: VALBENAZINE
     Indication: TARDIVE DYSKINESIA
  2. LITHIUM. [Suspect]
     Active Substance: LITHIUM
     Indication: PRODUCT USED FOR UNKNOWN INDICATION
  3. LITHIUM. [Suspect]
     Active Substance: LITHIUM
  4. LITHIUM. [Suspect]
     Active Substance: LITHIUM
  5. INVEGA [Suspect]
     Active Substance: PALIPERIDONE
     Indication: MANIA
     Dosage: 234 AND 156

REACTIONS (1)
  - Suicidal ideation [Unknown]
